FAERS Safety Report 10714995 (Version 2)
Quarter: 2015Q3

REPORT INFORMATION
  Report Type: Spontaneous
  Country: US (occurrence: US)
  Receive Date: 20150115
  Receipt Date: 20150727
  Transmission Date: 20151125
  Serious: No
  Sender: FDA-Public Use
  Company Number: US-GLAXOSMITHKLINE-US2014041389

PATIENT
  Age: 84 Year
  Sex: Female

DRUGS (4)
  1. NORVASC [Concomitant]
     Active Substance: AMLODIPINE BESYLATE
  2. COREG [Suspect]
     Active Substance: CARVEDILOL
     Indication: BLOOD PRESSURE MEASUREMENT
     Dosage: 6.25 MG, BID
     Route: 048
     Dates: start: 2004
  3. MULTIPLE DRUGS [Concomitant]
     Active Substance: UNSPECIFIED INGREDIENT
  4. NORCO [Concomitant]
     Active Substance: ACETAMINOPHEN\HYDROCODONE BITARTRATE

REACTIONS (5)
  - Dyspnoea [Recovered/Resolved]
  - Malaise [Recovered/Resolved]
  - Ventricular extrasystoles [Recovered/Resolved]
  - Vitamin D decreased [Not Recovered/Not Resolved]
  - Hypertension [Recovered/Resolved]

NARRATIVE: CASE EVENT DATE: 201312
